FAERS Safety Report 9806899 (Version 2)
Quarter: 2014Q3

REPORT INFORMATION
  Report Type: Spontaneous
  Country: US (occurrence: US)
  Receive Date: 20140109
  Receipt Date: 20140830
  Transmission Date: 20150326
  Serious: Yes (Hospitalization, Other)
  Sender: FDA-Public Use
  Company Number: US-009507513-1401USA003406

PATIENT
  Sex: Female

DRUGS (1)
  1. NUVARING [Suspect]
     Active Substance: ETHINYL ESTRADIOL\ETONOGESTREL
     Indication: CONTRACEPTION
     Dosage: UNK
     Route: 067
     Dates: start: 200901, end: 20120615

REACTIONS (4)
  - Hypotension [Recovered/Resolved]
  - Migraine [Unknown]
  - Pulmonary embolism [Unknown]
  - Dyspepsia [Unknown]

NARRATIVE: CASE EVENT DATE: 201206
